FAERS Safety Report 6016510-X (Version None)
Quarter: 2008Q4

REPORT INFORMATION
  Report Type: 
  Country: None (occurrence: None)
  Receive Date: 20081222
  Receipt Date: 20081210
  Transmission Date: 20090506
  Serious: Yes (Other)
  Sender: FDA-Public Use
  Company Number: US-PFIZER INC-2008152659

PATIENT
  Sex: Male
  Weight: 100.69 kg

DRUGS (8)
  1. NEURONTIN [Suspect]
     Indication: TRIGEMINAL NEURALGIA
  2. OMEPRAZOLE [Concomitant]
  3. METOPROLOL TARTRATE [Concomitant]
  4. EMEDUR [Concomitant]
  5. LOVASTATIN [Concomitant]
  6. WARFARIN SODIUM [Concomitant]
  7. ASPIRIN [Concomitant]
  8. VITAMINS [Concomitant]

REACTIONS (1)
  - CONVULSION [None]
